FAERS Safety Report 7654963-1 (Version None)
Quarter: 2011Q3

REPORT INFORMATION
  Report Type: 
  Country: None (occurrence: None)
  Receive Date: 20110728
  Receipt Date: 20110712
  Transmission Date: 20111222
  Serious: Yes (Death, Life-Threatening, Hospitalization, Other)
  Sender: FDA-Public Use
  Company Number: 2011MA008719

PATIENT
  Age: 39 Year
  Sex: Female

DRUGS (2)
  1. CARBAMAZEPINE [Suspect]
     Indication: NEURALGIA
  2. PREDNISONE [Concomitant]

REACTIONS (14)
  - DISSEMINATED INTRAVASCULAR COAGULATION [None]
  - STEVENS-JOHNSON SYNDROME [None]
  - GENERAL PHYSICAL HEALTH DETERIORATION [None]
  - PNEUMONIA [None]
  - CONDITION AGGRAVATED [None]
  - REFUSAL OF TREATMENT BY PATIENT [None]
  - SYSTEMIC LUPUS ERYTHEMATOSUS [None]
  - HYPERCHOLESTEROLAEMIA [None]
  - SEPSIS [None]
  - DISEASE COMPLICATION [None]
  - PLEURISY [None]
  - DRUG HYPERSENSITIVITY [None]
  - RENAL CYST [None]
  - RESPIRATORY DISTRESS [None]
